FAERS Safety Report 5477973-1 (Version None)
Quarter: 2007Q4

REPORT INFORMATION
  Report Type: 
  Country: None (occurrence: None)
  Receive Date: 20071005
  Receipt Date: 20070926
  Transmission Date: 20080405
  Serious: Yes (Hospitalization)
  Sender: FDA-Public Use
  Company Number: US-KINGPHARMUSA00001-K200701247

PATIENT

DRUGS (7)
  1. ALTACE [Suspect]
     Indication: NEPHROTIC SYNDROME
     Dosage: 1.25 MG, QD
     Route: 048
  2. LASIX [Suspect]
     Indication: NEPHROTIC SYNDROME
     Dosage: UNK, QD
     Route: 048
  3. THALIDOMIDE [Suspect]
     Indication: MULTIPLE MYELOMA
     Dosage: 200 MG, QD
     Route: 048
  4. ALDACTONE [Suspect]
     Indication: NEPHROTIC SYNDROME
     Dosage: 75 MG, QD
     Route: 048
  5. ALKERAN [Concomitant]
     Indication: MULTIPLE MYELOMA
     Dosage: 8 MG, FILM-COATED TABLET
     Route: 048
  6. DEXAMETHASONE 0.5MG TAB [Concomitant]
     Indication: MULTIPLE MYELOMA
     Dosage: 40 MG, UNK
     Route: 048
  7. PREVISCAN  /00789001/ [Concomitant]
     Dosage: TABLETS
     Route: 048
     Dates: end: 20070201

REACTIONS (3)
  - DEEP VEIN THROMBOSIS [None]
  - PHLEBITIS [None]
  - PULMONARY EMBOLISM [None]
